FAERS Safety Report 8828577 (Version 1)
Quarter: 2012Q4

REPORT INFORMATION
  Report Type: Report from Study
  Country: DE (occurrence: DE)
  Receive Date: 20121005
  Receipt Date: 20121005
  Transmission Date: 20130627
  Serious: Yes (Hospitalization)
  Sender: FDA-Public Use
  Company Number: DE-ROCHE-1141217

PATIENT
  Sex: Male
  Weight: 65.06 kg

DRUGS (5)
  1. AVASTIN [Suspect]
     Indication: COLORECTAL CANCER METASTATIC
     Dosage: 350 mg first day of a 2 weeks cycle
     Route: 042
     Dates: start: 20120719
  2. IRINOTECAN [Suspect]
     Indication: COLORECTAL CANCER METASTATIC
     Dosage: 330 mg on first day
     Route: 042
     Dates: start: 20120719
  3. FLUOROURACIL [Suspect]
     Indication: COLORECTAL CANCER METASTATIC
     Dosage: 750 mg bolus of a 2 weeks cycle
     Route: 042
     Dates: start: 20120719
  4. FLUOROURACIL [Suspect]
     Dosage: pump/day 1-2 450 mg of a 2 weeks cycle
     Route: 065
     Dates: start: 20120731
  5. FOLINIC ACID [Suspect]
     Indication: COLORECTAL CANCER METASTATIC
     Dosage: 750 mg on first day of a 2 weeks cycle
     Route: 042
     Dates: start: 20120719

REACTIONS (2)
  - General physical health deterioration [Recovered/Resolved]
  - Nausea [Recovered/Resolved]
